FAERS Safety Report 8288616-6 (Version None)
Quarter: 2012Q2

REPORT INFORMATION
  Report Type: 
  Country: None (occurrence: None)
  Receive Date: 20120416
  Receipt Date: 20120127
  Transmission Date: 20120825
  Serious: Yes (Hospitalization)
  Sender: FDA-Public Use
  Company Number: PHHO2012US001755

PATIENT
  Sex: Male
  Weight: 127 kg

DRUGS (5)
  1. COREG [Suspect]
     Dosage: UNK
     Dates: start: 20111027
  2. PRAVASTATIN [Concomitant]
     Indication: HYPERCHOLESTEROLAEMIA
     Dosage: 40 MG, UNK
     Route: 048
     Dates: start: 20110124
  3. ALISKIREN [Suspect]
     Indication: CARDIAC FAILURE ACUTE
     Dosage: UNK
     Route: 048
     Dates: start: 20110125
  4. LISINOPRIL [Suspect]
     Indication: HYPERTENSION
     Dosage: 40 MG, UNK
     Route: 048
     Dates: start: 20110124
  5. COREG [Suspect]
     Indication: HYPERTENSION
     Dosage: 12.5 MG, BID
     Dates: start: 20110124

REACTIONS (1)
  - CARDIAC FAILURE [None]
